FAERS Safety Report 8416211-4 (Version None)
Quarter: 2012Q2

REPORT INFORMATION
  Report Type: 
  Country: None (occurrence: None)
  Receive Date: 20120606
  Receipt Date: 20120601
  Transmission Date: 20120825
  Serious: Yes (Hospitalization)
  Sender: FDA-Public Use
  Company Number: US-PFIZER INC-2012133926

PATIENT

DRUGS (2)
  1. ARGATROBAN [Suspect]
     Indication: HEPARIN-INDUCED THROMBOCYTOPENIA
     Dosage: UNK
     Route: 042
  2. COUMADIN [Concomitant]
     Dosage: UNK

REACTIONS (1)
  - PLATELET COUNT DECREASED [None]
